FAERS Safety Report 9921086 (Version 2)
Quarter: 2014Q1

REPORT INFORMATION
  Report Type: Spontaneous
  Country: US (occurrence: US)
  Receive Date: 20140225
  Receipt Date: 20140228
  Transmission Date: 20141002
  Serious: Yes (Hospitalization, Other)
  Sender: FDA-Public Use
  Company Number: US-RB-063174-14

PATIENT
  Age: 73 Year
  Sex: Female

DRUGS (3)
  1. DELSYM [Suspect]
     Indication: PRODUCT USED FOR UNKNOWN INDICATION
     Dosage: USED 10ML EVERY 12 HOURS
     Route: 048
     Dates: start: 20140210
  2. AMITRIPTYLINE [Concomitant]
     Indication: PRODUCT USED FOR UNKNOWN INDICATION
  3. CYCLOBENZAPRINE [Concomitant]
     Indication: PRODUCT USED FOR UNKNOWN INDICATION

REACTIONS (7)
  - Blood sodium decreased [Recovered/Resolved]
  - Amnesia [Recovered/Resolved]
  - Psychomotor hyperactivity [Recovered/Resolved]
  - Discomfort [Recovered/Resolved]
  - Confusional state [Recovered/Resolved]
  - Dizziness [Recovered/Resolved]
  - Labelled drug-drug interaction medication error [Recovered/Resolved]
